FAERS Safety Report 7018640-2 (Version None)
Quarter: 2010Q3

REPORT INFORMATION
  Report Type: 
  Country: None (occurrence: None)
  Receive Date: 20100928
  Receipt Date: 20100921
  Transmission Date: 20110219
  Serious: Yes (Other)
  Sender: FDA-Public Use
  Company Number: US-WYE-H17105510

PATIENT
  Sex: Female
  Weight: 56.3 kg

DRUGS (2)
  1. PREMARIN [Suspect]
     Indication: MENOPAUSAL SYMPTOMS
     Dosage: 1 MG DAILY FOR 21 DAYS, STARTED AFTER OCT-2007, USED INTERMITTENTLY AND DISCONTINUED ON 22-AUG-2010
     Route: 067
  2. PREMARIN [Suspect]
     Indication: VAGINAL DISORDER

REACTIONS (4)
  - BLINDNESS TRANSIENT [None]
  - DRUG INEFFECTIVE [None]
  - DYSPNOEA [None]
  - HEADACHE [None]
